FAERS Safety Report 7246282-2 (Version None)
Quarter: 2011Q1

REPORT INFORMATION
  Report Type: 
  Country: None (occurrence: None)
  Receive Date: 20110126
  Receipt Date: 20110118
  Transmission Date: 20110831
  Serious: Yes (Hospitalization)
  Sender: FDA-Public Use
  Company Number: US-JNJFOC-20110105164

PATIENT
  Sex: Male
  Weight: 83.92 kg

DRUGS (2)
  1. NUCYNTA [Suspect]
     Indication: BACK PAIN
     Route: 048
  2. ATIVAN [Concomitant]
     Indication: TREMOR
     Route: 065

REACTIONS (2)
  - HOSPITALISATION [None]
  - WITHDRAWAL SYNDROME [None]
